FAERS Safety Report 10159946 (Version 1)
Quarter: 2014Q2

REPORT INFORMATION
  Report Type: Spontaneous
  Country: US (occurrence: US)
  Receive Date: 20140508
  Receipt Date: 20140508
  Transmission Date: 20141212
  Serious: No
  Sender: FDA-Public Use
  Company Number: US-009507513-1404USA015612

PATIENT
  Age: 8 Year
  Sex: Male
  Weight: 31.75 kg

DRUGS (3)
  1. CLARITIN CHEWABLE TABLETS [Suspect]
     Indication: SEASONAL ALLERGY
     Dosage: 5 MG, ONCE
     Route: 048
     Dates: start: 20140416
  2. CLARITIN CHEWABLE TABLETS [Suspect]
     Dosage: 5 MG, ONCE
     Route: 048
     Dates: start: 20140417
  3. CLARITIN CHEWABLE TABLETS [Suspect]
     Dosage: 5 MG, ONCE
     Route: 048
     Dates: start: 20140417

REACTIONS (2)
  - Fatigue [Not Recovered/Not Resolved]
  - Accidental overdose [Unknown]
